FAERS Safety Report 16432414 (Version 1)
Quarter: 2019Q2

REPORT INFORMATION
  Report Type: Spontaneous
  Country: GB (occurrence: GB)
  Receive Date: 20190614
  Receipt Date: 20190614
  Transmission Date: 20190711
  Serious: Yes (Hospitalization)
  Sender: FDA-Public Use
  Company Number: GB-MYLANLABS-2019M1054876

PATIENT
  Age: 17 Year
  Sex: Male
  Weight: 54.7 kg

DRUGS (7)
  1. COLECALCIFEROL [Concomitant]
     Active Substance: CHOLECALCIFEROL
  2. DIAZEPAM. [Concomitant]
     Active Substance: DIAZEPAM
     Dosage: UNK
  3. PRIADEL                            /00033702/ [Suspect]
     Active Substance: LITHIUM CARBONATE
     Dosage: 600 MILLIGRAM
     Route: 048
     Dates: start: 20181116, end: 20181122
  4. PRIADEL                            /00033702/ [Suspect]
     Active Substance: LITHIUM CARBONATE
     Indication: BIPOLAR DISORDER
     Dosage: UNK
     Route: 048
     Dates: start: 20181109, end: 20181116
  5. LYMECYCLINE [Suspect]
     Active Substance: LYMECYCLINE
     Indication: ACNE
     Dosage: 408 MILLIGRAM
     Route: 048
     Dates: start: 20181008, end: 20181122
  6. PROMETHAZINE HYDROCHLORIDE. [Concomitant]
     Active Substance: PROMETHAZINE HYDROCHLORIDE
     Dosage: UNK
  7. QUETIAPINE. [Suspect]
     Active Substance: QUETIAPINE
     Indication: BIPOLAR DISORDER
     Dosage: 300 MILLIGRAM, QD
     Route: 048
     Dates: start: 20181015, end: 20181122

REACTIONS (2)
  - Chest pain [Recovered/Resolved]
  - Myocarditis [Recovered/Resolved]

NARRATIVE: CASE EVENT DATE: 20181122
